FAERS Safety Report 15849905 (Version 8)
Quarter: 2020Q1

REPORT INFORMATION
  Report Type: Report from Study
  Country: US (occurrence: US)
  Receive Date: 20190121
  Receipt Date: 20200122
  Transmission Date: 20200409
  Serious: Yes (Death, Hospitalization)
  Sender: FDA-Public Use
  Company Number: US-ACTELION-A-US2017-147900

PATIENT
  Age: 67 Year
  Sex: Female
  Weight: 86.17 kg

DRUGS (8)
  1. UPTRAVI [Suspect]
     Active Substance: SELEXIPAG
     Indication: PULMONARY ARTERIAL HYPERTENSION
     Dosage: 1400 MCG, BID
     Route: 048
  2. OXYGEN. [Concomitant]
     Active Substance: OXYGEN
     Dosage: 6 L, UNK
  3. UPTRAVI [Suspect]
     Active Substance: SELEXIPAG
     Dosage: UNK
     Route: 048
  4. OPSUMIT [Suspect]
     Active Substance: MACITENTAN
     Indication: PULMONARY ARTERIAL HYPERTENSION
     Dosage: 10 MG, QD
     Route: 048
     Dates: start: 20160209
  5. OPSUMIT [Suspect]
     Active Substance: MACITENTAN
     Dosage: 10 MG, QD
     Route: 048
  6. METHOTREXATE. [Suspect]
     Active Substance: METHOTREXATE
     Indication: PRODUCT USED FOR UNKNOWN INDICATION
     Route: 065
  7. UPTRAVI [Suspect]
     Active Substance: SELEXIPAG
     Dosage: 1600 MCG, BID
     Route: 048
  8. ADEMPAS [Concomitant]
     Active Substance: RIOCIGUAT

REACTIONS (19)
  - Death [Fatal]
  - Diabetes mellitus [Unknown]
  - Diarrhoea [Unknown]
  - Epistaxis [Unknown]
  - Hypertension [Unknown]
  - Dyspnoea [Unknown]
  - Arthritis [Unknown]
  - Dizziness [Unknown]
  - Scleroderma [Unknown]
  - Nasopharyngitis [Unknown]
  - Headache [Unknown]
  - Gastrooesophageal reflux disease [Unknown]
  - Bedridden [Unknown]
  - Oxygen saturation increased [Unknown]
  - Neuralgia [Unknown]
  - Chest pain [Unknown]
  - Condition aggravated [Unknown]
  - Pain [Unknown]
  - Palliative care [Unknown]

NARRATIVE: CASE EVENT DATE: 20161228
